FAERS Safety Report 9229977 (Version 1)
Quarter: 2013Q1

REPORT INFORMATION
  Report Type: Spontaneous
  Country: US (occurrence: None)
  Receive Date: 20121022
  Receipt Date: 20121022
  Transmission Date: 20140127
  Serious: Yes (Hospitalization)
  Sender: FDA-Public Use
  Company Number: 2010S1000397

PATIENT
  Age: 24 Year
  Sex: Male

DRUGS (1)
  1. DARVOCET-N (PROPACET) (100 MILLIGRAM) [Suspect]
     Indication: TOOTHACHE
     Dosage: (100 MG, 1 IN 8 HR), ORAL
     Route: 048
     Dates: start: 20030217, end: 20030303

REACTIONS (4)
  - Myocardial infarction [None]
  - Atrial fibrillation [None]
  - Supraventricular tachycardia [None]
  - Bradycardia [None]
